FAERS Safety Report 4432886-9 (Version None)
Quarter: 2004Q3

REPORT INFORMATION
  Report Type: 
  Country: None (occurrence: None)
  Receive Date: 20040823
  Receipt Date: 20040809
  Transmission Date: 20050211
  Serious: Yes (Hospitalization)
  Sender: FDA-Public Use
  Company Number: CIP04001356

PATIENT
  Age: 47 Year
  Sex: Female

DRUGS (17)
  1. BENET (RISEDRONATE SODIUM) TABLET, 2.5MG [Suspect]
     Indication: OSTEOPOROSIS
     Dosage: 2.5 MG DAILY, ORAL
     Route: 048
     Dates: start: 20040101, end: 20040610
  2. RHEUMATREX [Suspect]
     Indication: RHEUMATOID ARTHRITIS
     Dosage: SEE IMAGE
     Route: 048
     Dates: start: 20020501, end: 20020901
  3. RHEUMATREX [Suspect]
     Indication: RHEUMATOID ARTHRITIS
     Dosage: SEE IMAGE
     Route: 048
     Dates: start: 20020901, end: 20021001
  4. RHEUMATREX [Suspect]
     Indication: RHEUMATOID ARTHRITIS
     Dosage: SEE IMAGE
     Route: 048
     Dates: start: 20021001, end: 20030301
  5. RHEUMATREX [Suspect]
     Indication: RHEUMATOID ARTHRITIS
     Dosage: SEE IMAGE
     Route: 048
     Dates: start: 20020201
  6. RHEUMATREX [Suspect]
     Indication: RHEUMATOID ARTHRITIS
     Dosage: SEE IMAGE
     Route: 048
     Dates: start: 20030301
  7. ALFAROL (ALFACALCIDOL) [Suspect]
     Indication: OSTEOPOROSIS
     Dosage: 0.5 MICR., ORAL
     Route: 048
     Dates: end: 20040610
  8. ISONIAZID [Suspect]
     Indication: INFECTION PROPHYLAXIS
     Dosage: 100 MG, ORAL
     Route: 048
     Dates: start: 20031114, end: 20040616
  9. PARIET (RABEPRAZOLE SODIUM) [Suspect]
     Indication: GASTRIC ULCER
     Dosage: 10 MG, ORAL
     Route: 048
     Dates: start: 20031208, end: 20040610
  10. DIAMOX [Suspect]
     Indication: GLAUCOMA
     Dosage: 1000 MG, ORAL
     Route: 048
     Dates: start: 20031115, end: 20040610
  11. LASIX [Suspect]
     Indication: OEDEMA
     Dosage: 10 MG, ORAL
     Route: 048
     Dates: end: 20040610
  12. VITAMEDIN CAPSULE (BENFOTIAMINE, CYANOCOBALAMIN, PYRIDOXINE HYDROCHLOR [Suspect]
     Indication: HYPOVITAMINOSIS
     Dosage: 75 MG, ORAL
     Route: 048
     Dates: start: 20031119, end: 20040610
  13. CALCIUM GLUCONATE [Suspect]
     Indication: GLAUCOMA
     Dosage: 8 G, ORAL
     Route: 048
     Dates: start: 20031115, end: 20040610
  14. FOLIC ACID [Suspect]
     Indication: FOLATE DEFICIENCY
     Dosage: 5 MG, ORAL
     Route: 048
     Dates: start: 20040301, end: 20040603
  15. PREDNISOLONE [Concomitant]
  16. OTHER NUTRIENTS [Concomitant]
  17. REMICADE [Concomitant]

REACTIONS (21)
  - BLOOD ALKALINE PHOSPHATASE INCREASED [None]
  - BLOOD LACTATE DEHYDROGENASE INCREASED [None]
  - C-REACTIVE PROTEIN INCREASED [None]
  - CONDITION AGGRAVATED [None]
  - DRUG ERUPTION [None]
  - EOSINOPHILIA [None]
  - ERYTHEMA [None]
  - EXANTHEM [None]
  - HAEMATOCRIT DECREASED [None]
  - HAEMOGLOBIN DECREASED [None]
  - HYPERSENSITIVITY [None]
  - LABORATORY TEST ABNORMAL [None]
  - LYMPHOCYTE PERCENTAGE DECREASED [None]
  - MONOCYTE PERCENTAGE INCREASED [None]
  - NEUTROPHIL PERCENTAGE INCREASED [None]
  - OSTEOPOROSIS [None]
  - PLATELET COUNT INCREASED [None]
  - PRURITUS [None]
  - RASH PAPULAR [None]
  - URTICARIA [None]
  - WHITE BLOOD CELL COUNT INCREASED [None]
